FAERS Safety Report 9949167 (Version 1)
Quarter: 2014Q1

REPORT INFORMATION
  Report Type: Spontaneous
  Country: US (occurrence: US)
  Receive Date: 20140304
  Receipt Date: 20140304
  Transmission Date: 20141002
  Serious: No
  Sender: FDA-Public Use
  Company Number: US-BIOGENIDEC-2014BI018581

PATIENT
  Age: 57 Year
  Sex: Female

DRUGS (3)
  1. TYSABRI [Suspect]
     Indication: MULTIPLE SCLEROSIS
     Route: 042
     Dates: start: 20100917
  2. TYSABRI [Suspect]
     Indication: MULTIPLE SCLEROSIS
     Route: 042
     Dates: end: 20130628
  3. B12 [Concomitant]
     Route: 048

REACTIONS (17)
  - Nuclear magnetic resonance imaging abnormal [Not Recovered/Not Resolved]
  - Phonophobia [Unknown]
  - Muscular weakness [Unknown]
  - Gait disturbance [Unknown]
  - Aphasia [Unknown]
  - Burnout syndrome [Unknown]
  - Tremor [Unknown]
  - Stress [Unknown]
  - Diabetes mellitus inadequate control [Unknown]
  - Blood triglycerides increased [Unknown]
  - High density lipoprotein decreased [Unknown]
  - Ataxia [Unknown]
  - Fall [Unknown]
  - Loss of control of legs [Recovered/Resolved]
  - Headache [Unknown]
  - Fatigue [Unknown]
  - Nausea [Unknown]
